FAERS Safety Report 18886228 (Version 1)
Quarter: 2021Q1

REPORT INFORMATION
  Report Type: Report from Study
  Country: US (occurrence: US)
  Receive Date: 20210212
  Receipt Date: 20210212
  Transmission Date: 20210420
  Serious: Yes (Life-Threatening, Hospitalization, Other)
  Sender: FDA-Public Use
  Company Number: US-INCYTE CORPORATION-2021IN000714

PATIENT

DRUGS (14)
  1. JAKAFI [Suspect]
     Active Substance: RUXOLITINIB
     Indication: MYELOFIBROSIS
     Dosage: 10 MILLIGRAM, BID
     Route: 048
     Dates: start: 20200522, end: 20200727
  2. ZOFRAN [Concomitant]
     Active Substance: ONDANSETRON HYDROCHLORIDE
     Dosage: 16 MILLIGRAM, QD
     Route: 042
     Dates: start: 20200729, end: 20200729
  3. ACETAMINOPHEN. [Concomitant]
     Active Substance: ACETAMINOPHEN
     Indication: INFUSION
     Dosage: 650 MILLIGRAM
     Route: 048
     Dates: start: 20200729, end: 20200729
  4. CORTEF [Concomitant]
     Active Substance: HYDROCORTISONE
     Indication: INFLAMMATION
     Dosage: 250 MILLIGRAM
     Route: 042
     Dates: start: 20200729, end: 20200729
  5. DEXTROSE. [Concomitant]
     Active Substance: DEXTROSE
     Indication: INFUSION
     Dosage: 1000 MILLILITER
     Route: 042
     Dates: start: 20200729, end: 20200729
  6. SUBLIMAZE [Concomitant]
     Active Substance: FENTANYL CITRATE
     Indication: PAIN
     Dosage: 25 MICROGRAM
     Route: 042
     Dates: start: 20200721, end: 20200721
  7. FLUDARA [Concomitant]
     Active Substance: FLUDARABINE PHOSPHATE
     Indication: MYELOFIBROSIS
     Dosage: 61 MILLIGRAM
     Route: 042
     Dates: start: 20200724, end: 20200727
  8. ZOFRAN [Concomitant]
     Active Substance: ONDANSETRON HYDROCHLORIDE
     Indication: NAUSEA
     Dosage: 8 MILLIGRAM, QD
     Route: 048
     Dates: start: 20200724, end: 20200726
  9. PHENADOZ [Concomitant]
     Active Substance: PROMETHAZINE HYDROCHLORIDE
     Indication: NAUSEA
     Dosage: 25 MILLIGRAM, QD
     Route: 042
     Dates: start: 20200729, end: 20200729
  10. APREPITANT. [Concomitant]
     Active Substance: APREPITANT
     Indication: NAUSEA
     Dosage: 130 MILLIGRAM
     Route: 042
     Dates: start: 20200727, end: 20200727
  11. DEXASONE [DEXAMETHASONE] [Concomitant]
     Indication: INFLAMMATION
     Dosage: 10 MILLIGRAM
     Route: 042
     Dates: start: 20200727, end: 20200727
  12. VERSED [Concomitant]
     Active Substance: MIDAZOLAM HYDROCHLORIDE
     Indication: SEDATION
     Dosage: 0.5 MILLIGRAM, QD
     Route: 042
     Dates: start: 20200721, end: 20200721
  13. MELPHALAN. [Concomitant]
     Active Substance: MELPHALAN
     Indication: MYELOFIBROSIS
     Dosage: 200 MILLIGRAM
     Route: 042
     Dates: start: 20200727, end: 20200727
  14. ZOFRAN [Concomitant]
     Active Substance: ONDANSETRON HYDROCHLORIDE
     Dosage: 8 MILLIGRAM, QD
     Route: 042
     Dates: start: 20200727, end: 20200727

REACTIONS (3)
  - Cholestatic liver injury [Recovered/Resolved]
  - Decreased appetite [Recovered/Resolved]
  - Renal tubular necrosis [Recovered/Resolved]

NARRATIVE: CASE EVENT DATE: 20200802
